FAERS Safety Report 4841188-8 (Version None)
Quarter: 2005Q4

REPORT INFORMATION
  Report Type: 
  Country: None (occurrence: None)
  Receive Date: 20051130
  Receipt Date: 20050921
  Transmission Date: 20060501
  Serious: No
  Sender: FDA-Public Use
  Company Number: US-BRISTOL-MYERS SQUIBB COMPANY-13157961

PATIENT
  Age: 26 Year
  Sex: Female

DRUGS (5)
  1. ABILIFY [Suspect]
     Indication: BIPOLAR DISORDER
     Route: 048
  2. ABILIFY [Suspect]
     Indication: DEPRESSION
     Route: 048
  3. LITHIUM [Concomitant]
  4. DEPAKOTE [Concomitant]
  5. WELLBUTRIN [Concomitant]

REACTIONS (2)
  - AKATHISIA [None]
  - DEPRESSION [None]
